FAERS Safety Report 20455372 (Version 3)
Quarter: 2022Q3

REPORT INFORMATION
  Report Type: Spontaneous
  Country: JP (occurrence: JP)
  Receive Date: 20220210
  Receipt Date: 20220714
  Transmission Date: 20221026
  Serious: No
  Sender: FDA-Public Use
  Company Number: JP-GSKNCCC-Case-01412821_AE-54439

PATIENT

DRUGS (12)
  1. SOTROVIMAB [Suspect]
     Active Substance: SOTROVIMAB
     Dosage: UNK
     Dates: start: 20220131
  2. FERROUS SULFATE [Suspect]
     Active Substance: FERROUS SULFATE
     Indication: Anaemia
     Dosage: 105 MG
     Route: 048
     Dates: start: 20211227
  3. LEVOTHYROXINE SODIUM [Suspect]
     Active Substance: LEVOTHYROXINE SODIUM
     Indication: Hypothyroidism
     Dosage: 75 ?G
     Route: 048
  4. ASPIRIN\DIHYDROXYALUMINUM AMINOACETATE ANHYDROUS\MAGNESIUM CARBONATE [Suspect]
     Active Substance: ASPIRIN\DIHYDROXYALUMINUM AMINOACETATE ANHYDROUS\MAGNESIUM CARBONATE
     Indication: Cardiolipin antibody positive
     Dosage: 81 MG
     Route: 048
     Dates: start: 20211025
  5. MICONAZOLE NITRATE [Suspect]
     Active Substance: MICONAZOLE NITRATE
     Indication: Candida infection
     Dosage: 100 MG
     Route: 067
     Dates: start: 20211019, end: 20211227
  6. RITODRINE [Suspect]
     Active Substance: RITODRINE
     Indication: Abortion threatened
     Dosage: 15 MG
     Route: 048
     Dates: start: 20211213, end: 20211226
  7. RITODRINE [Suspect]
     Active Substance: RITODRINE
     Indication: Premature labour
  8. HERBALS [Suspect]
     Active Substance: HERBALS
     Dosage: 7.5 G
     Route: 048
     Dates: start: 20211213, end: 20211226
  9. HERBALS [Suspect]
     Active Substance: HERBALS
     Indication: Pyrexia
     Dosage: 7.5 G
     Route: 048
     Dates: start: 20220205, end: 20220210
  10. ACETAMINOPHEN [Suspect]
     Active Substance: ACETAMINOPHEN
     Indication: Pyrexia
     Dosage: 1500 MG
     Route: 048
     Dates: start: 20220205, end: 20220208
  11. DEXTROSE\POTASSIUM CHLORIDE\SODIUM CHLORIDE\SODIUM LACTATE [Suspect]
     Active Substance: DEXTROSE\POTASSIUM CHLORIDE\SODIUM CHLORIDE\SODIUM LACTATE
     Indication: Fluid replacement
     Dosage: 500 ML
     Route: 042
     Dates: start: 20220205, end: 20220205
  12. CYANOCOBALAMIN\PYRIDOXINE HYDROCHLORIDE\THIAMINE [Suspect]
     Active Substance: CYANOCOBALAMIN\PYRIDOXINE HYDROCHLORIDE\THIAMINE
     Indication: Fluid replacement
     Dosage: 1 DF
     Route: 042
     Dates: start: 20220205, end: 20220205

REACTIONS (1)
  - Exposure during pregnancy [Unknown]
